FAERS Safety Report 7917258-4 (Version None)
Quarter: 2011Q4

REPORT INFORMATION
  Report Type: 
  Country: None (occurrence: None)
  Receive Date: 20111114
  Receipt Date: 20111028
  Transmission Date: 20120403
  Serious: Yes (Hospitalization)
  Sender: FDA-Public Use
  Company Number: TCI2011A05541

PATIENT
  Age: 70 Year
  Sex: Male

DRUGS (8)
  1. BASEN (VOGLIBOSE) [Concomitant]
  2. METFORMIN HYDROCHLORIDE [Concomitant]
  3. THEO-DUR [Concomitant]
  4. GLYBURIDE [Concomitant]
  5. ACTOS [Suspect]
     Indication: DIABETES MELLITUS
     Dosage: 15 MG (15 MG, 1 IN 1 D), PER ORAL
     Route: 048
     Dates: start: 20080318, end: 20090814
  6. ISOSORBIDE MONONITRATE [Concomitant]
  7. CONIEL (BENIDIPINE HYDROCHLORIDE) [Concomitant]
  8. DORNER (BERAPROST SODIUM) [Concomitant]

REACTIONS (3)
  - BLADDER CANCER [None]
  - ANGINA PECTORIS [None]
  - MYOCARDIAL INFARCTION [None]
